FAERS Safety Report 25768503 (Version 2)
Quarter: 2025Q4

REPORT INFORMATION
  Report Type: Spontaneous
  Country: EU (occurrence: EU)
  Receive Date: 20250905
  Receipt Date: 20251001
  Transmission Date: 20260118
  Serious: No
  Sender: UCB
  Company Number: EU-UCBSA-2025053894

PATIENT
  Age: 76 Year
  Sex: Female

DRUGS (1)
  1. NEUPRO [Suspect]
     Active Substance: ROTIGOTINE
     Indication: Parkinson^s disease
     Dosage: UNK
     Route: 062

REACTIONS (3)
  - Weight decreased [Unknown]
  - Application site erythema [Unknown]
  - Product adhesion issue [Unknown]
